FAERS Safety Report 16353384 (Version 1)
Quarter: 2019Q2

REPORT INFORMATION
  Report Type: Spontaneous
  Country: US (occurrence: US)
  Receive Date: 20190524
  Receipt Date: 20190524
  Transmission Date: 20190711
  Serious: No
  Sender: FDA-Public Use
  Company Number: US-TEVA-2019-US-1052290

PATIENT
  Age: 39 Year
  Sex: Female

DRUGS (2)
  1. CLONAZEPAM. [Suspect]
     Active Substance: CLONAZEPAM
     Indication: PANIC ATTACK
     Route: 065
  2. CLONAZEPAM. [Suspect]
     Active Substance: CLONAZEPAM
     Indication: ANXIETY

REACTIONS (6)
  - Anxiety [Unknown]
  - Panic attack [Unknown]
  - Palpitations [Unknown]
  - Nausea [Unknown]
  - Product substitution issue [Unknown]
  - Headache [Unknown]

NARRATIVE: CASE EVENT DATE: 201904
